FAERS Safety Report 7719659-6 (Version None)
Quarter: 2011Q3

REPORT INFORMATION
  Report Type: 
  Country: None (occurrence: None)
  Receive Date: 20110830
  Receipt Date: 20110825
  Transmission Date: 20111222
  Serious: Yes (Hospitalization)
  Sender: FDA-Public Use
  Company Number: CH-MERCK-1108USA03154

PATIENT
  Age: 55 Year
  Sex: Male
  Weight: 86 kg

DRUGS (2)
  1. DEXAFREE [Concomitant]
     Route: 047
     Dates: start: 20100101
  2. COSOPT [Suspect]
     Indication: GLAUCOMA
     Dosage: ONE EYE
     Route: 047
     Dates: start: 20110501, end: 20110702

REACTIONS (2)
  - HEADACHE [None]
  - INCORRECT DRUG ADMINISTRATION RATE [None]
